FAERS Safety Report 15439125 (Version 4)
Quarter: 2018Q4

REPORT INFORMATION
  Report Type: Spontaneous
  Country: US (occurrence: US)
  Receive Date: 20180928
  Receipt Date: 20181228
  Transmission Date: 20190204
  Serious: Yes (Other)
  Sender: FDA-Public Use
  Company Number: US-PFIZER INC-2018388615

PATIENT
  Age: 70 Year
  Sex: Female

DRUGS (7)
  1. FIORICET [Concomitant]
     Active Substance: ACETAMINOPHEN\BUTALBITAL\CAFFEINE
     Dosage: UNK
  2. VALIUM [Concomitant]
     Active Substance: DIAZEPAM
     Dosage: UNK
  3. VISTARIL [Suspect]
     Active Substance: HYDROXYZINE PAMOATE
     Indication: TEMPOROMANDIBULAR JOINT SYNDROME
     Dosage: 50 MG (1 CAPSULE), 1X/DAY (AT BEDTIME)
  4. VISTARIL [Suspect]
     Active Substance: HYDROXYZINE PAMOATE
     Indication: FIBROMYALGIA
     Dosage: 1-2 CAPSULES, 1X/DAY (AT BEDTIME)
  5. SYNTHROID [Concomitant]
     Active Substance: LEVOTHYROXINE SODIUM
     Dosage: UNK
  6. VISTARIL [Suspect]
     Active Substance: HYDROXYZINE PAMOATE
     Dosage: UNK
     Dates: end: 201803
  7. VISTARIL [Suspect]
     Active Substance: HYDROXYZINE PAMOATE
     Indication: SLEEP DISORDER
     Dosage: 100 MG, UNK

REACTIONS (3)
  - Product use in unapproved indication [Unknown]
  - Somnolence [Unknown]
  - Blood pressure increased [Unknown]
